FAERS Safety Report 21822261 (Version 2)
Quarter: 2024Q2

REPORT INFORMATION
  Report Type: Spontaneous
  Country: FR (occurrence: FR)
  Receive Date: 20230105
  Receipt Date: 20240531
  Transmission Date: 20240715
  Serious: Yes (Hospitalization)
  Sender: FDA-Public Use
  Company Number: None

PATIENT
  Age: 67 Year
  Sex: Male

DRUGS (6)
  1. RITUXIMAB [Suspect]
     Active Substance: RITUXIMAB
     Indication: Diffuse large B-cell lymphoma
     Dosage: MOST RECENT DOSE ON 05/JAN/2022
     Route: 065
     Dates: start: 20220105, end: 20220105
  2. KYMRIAH [Suspect]
     Active Substance: TISAGENLECLEUCEL
     Indication: Diffuse large B-cell lymphoma
     Dosage: MOST RECENT DOSE ON 26/JAN/2022
     Route: 065
     Dates: start: 20220126, end: 20220126
  3. ETOPOSIDE [Suspect]
     Active Substance: ETOPOSIDE
     Indication: Diffuse large B-cell lymphoma
     Dosage: MOST RECENT DOSE ON 22/DEC/2021
     Route: 065
     Dates: start: 20211222, end: 20211222
  4. FLUDARABINE PHOSPHATE [Suspect]
     Active Substance: FLUDARABINE PHOSPHATE
     Indication: Bone marrow conditioning regimen
     Dosage: MOST RECENT DOSE ON 23/JAN/2022
     Route: 065
     Dates: start: 20220121, end: 20220123
  5. CYCLOPHOSPHAMIDE [Suspect]
     Active Substance: CYCLOPHOSPHAMIDE
     Indication: Bone marrow conditioning regimen
     Dosage: MOST RECENT DOSE ON 23/JAN/2022
     Route: 065
     Dates: start: 20220121, end: 20220123
  6. IFOSFAMIDE [Suspect]
     Active Substance: IFOSFAMIDE
     Indication: Diffuse large B-cell lymphoma
     Dosage: MOST RECENT DOSE ON 22/DEC/2021
     Route: 065
     Dates: start: 20211222, end: 20211222

REACTIONS (1)
  - Acute myeloid leukaemia [Not Recovered/Not Resolved]

NARRATIVE: CASE EVENT DATE: 20220810
